FAERS Safety Report 12334346 (Version 1)
Quarter: 2016Q2

REPORT INFORMATION
  Report Type: Spontaneous
  Country: US (occurrence: US)
  Receive Date: 20160504
  Receipt Date: 20160504
  Transmission Date: 20160815
  Serious: No
  Sender: FDA-Public Use
  Company Number: US-ABBVIE-15P-163-1388641-00

PATIENT
  Sex: Female

DRUGS (1)
  1. CREON [Suspect]
     Active Substance: PANCRELIPASE AMYLASE\PANCRELIPASE LIPASE\PANCRELIPASE PROTEASE
     Indication: PRODUCT USED FOR UNKNOWN INDICATION
     Route: 065

REACTIONS (8)
  - Anxiety [Unknown]
  - Abdominal distension [Unknown]
  - Abdominal pain upper [Unknown]
  - Malaise [Unknown]
  - Incorrect dose administered [Unknown]
  - Sleep disorder [Unknown]
  - Diarrhoea [Unknown]
  - Flatulence [Unknown]
